FAERS Safety Report 9203740 (Version 1)
Quarter: 2013Q1

REPORT INFORMATION
  Report Type: Spontaneous
  Country: US (occurrence: None)
  Receive Date: 20120709
  Receipt Date: 20120709
  Transmission Date: 20140127
  Serious: No
  Sender: FDA-Public Use
  Company Number: PHEH2011US00864

PATIENT
  Sex: Male

DRUGS (1)
  1. GLEEVEC (IMATINIB) [Suspect]
     Indication: CHRONIC MYELOID LEUKAEMIA
     Route: 048
     Dates: start: 20110620

REACTIONS (4)
  - Thrombocytopenia [None]
  - Anaemia [None]
  - Platelet count decreased [None]
  - Haemoglobin decreased [None]
